FAERS Safety Report 23081455 (Version 1)
Quarter: 2023Q4

REPORT INFORMATION
  Report Type: Spontaneous
  Country: RU (occurrence: None)
  Receive Date: 20231019
  Receipt Date: 20231019
  Transmission Date: 20240109
  Serious: Yes (Other)
  Sender: FDA-Public Use
  Company Number: RU-ROCHE-3438672

PATIENT
  Sex: Female

DRUGS (4)
  1. TRASTUZUMAB [Suspect]
     Active Substance: TRASTUZUMAB
     Indication: Invasive breast carcinoma
     Dosage: SUBSEQUENTLY RECEIVED 25 COURSES OF TRASTUZUMAB IN A MAINTENANCE REGIMEN, WITH AN ASSESSMENT OF THE
     Route: 065
     Dates: end: 201706
  2. PERTUZUMAB [Suspect]
     Active Substance: PERTUZUMAB
     Indication: Invasive breast carcinoma
     Route: 065
  3. ADO-TRASTUZUMAB EMTANSINE [Suspect]
     Active Substance: ADO-TRASTUZUMAB EMTANSINE
     Indication: Invasive breast carcinoma
     Dosage: SUBSEQUENT DOSES ON 26/APR/2022, 25/NOV/2022-30/JAN/2023 - 12-15TH COURSES OF TT WITH TRASTUZUMAB EM
     Route: 065
     Dates: start: 20220405
  4. DOCETAXEL [Suspect]
     Active Substance: DOCETAXEL
     Indication: Invasive breast carcinoma
     Route: 065
     Dates: start: 201706

REACTIONS (10)
  - Leukopenia [Unknown]
  - Mitral valve incompetence [Unknown]
  - Disease progression [Unknown]
  - Renal cyst [Unknown]
  - Haematotoxicity [Unknown]
  - Anaemia [Unknown]
  - Aortic valve thickening [Unknown]
  - Mitral valve thickening [Unknown]
  - Aortic wall hypertrophy [Unknown]
  - Cardiac output decreased [Unknown]
